FAERS Safety Report 10669734 (Version 1)
Quarter: 2014Q4

REPORT INFORMATION
  Report Type: Spontaneous
  Country: CA (occurrence: CA)
  Receive Date: 20141222
  Receipt Date: 20141222
  Transmission Date: 20150529
  Serious: Yes (Hospitalization, Other)
  Sender: FDA-Public Use
  Company Number: CA-GLAXOSMITHKLINE INC.-CA2014GSK039380

PATIENT
  Age: 44 Year
  Sex: Female

DRUGS (13)
  1. PULMOZYME [Concomitant]
     Active Substance: DORNASE ALFA
  2. MULTIVITAMINS [Concomitant]
     Active Substance: VITAMINS
     Dosage: UNK
     Route: 048
  3. VENTOLIN [Concomitant]
     Active Substance: ALBUTEROL SULFATE
     Dosage: UNK
  4. ADVAIR DISKUS [Suspect]
     Active Substance: FLUTICASONE PROPIONATE\SALMETEROL XINAFOATE
     Indication: PRODUCT USED FOR UNKNOWN INDICATION
     Dosage: 1 PUFF(S), BID
     Route: 055
  5. MULTIPLE VITAMINS [Concomitant]
     Active Substance: VITAMINS
  6. NAPROXEN. [Concomitant]
     Active Substance: NAPROXEN
     Dosage: 500 MG, BID
     Route: 048
  7. RESTORALAX [Concomitant]
     Active Substance: POLYETHYLENE GLYCOL 3350
     Dosage: UNK
     Route: 048
  8. CREON [Concomitant]
     Active Substance: PANCRELIPASE AMYLASE\PANCRELIPASE LIPASE\PANCRELIPASE PROTEASE
     Dosage: UNK
  9. FLUCONAZOLE. [Concomitant]
     Active Substance: FLUCONAZOLE
     Indication: FUNGAL INFECTION
     Dosage: UNK
  10. LOSEC [Concomitant]
     Active Substance: OMEPRAZOLE
     Dosage: UNK
     Route: 048
  11. MINERAL SUPPLEMENTS [Concomitant]
     Active Substance: UNSPECIFIED INGREDIENT
  12. TRAZODONE [Concomitant]
     Active Substance: TRAZODONE HYDROCHLORIDE
     Dosage: 100 MG, PRN
  13. KALYDECO [Concomitant]
     Active Substance: IVACAFTOR
     Dosage: 150 MG, BID
     Route: 048

REACTIONS (2)
  - Cystic fibrosis [Unknown]
  - Helicobacter infection [Unknown]

NARRATIVE: CASE EVENT DATE: 201411
